FAERS Safety Report 6575135-8 (Version None)
Quarter: 2010Q1

REPORT INFORMATION
  Report Type: 
  Country: None (occurrence: None)
  Receive Date: 20100209
  Receipt Date: 20100202
  Transmission Date: 20100710
  Serious: Yes (Hospitalization)
  Sender: FDA-Public Use
  Company Number: JP-TEVA-216689ISR

PATIENT
  Sex: Male
  Weight: 48 kg

DRUGS (10)
  1. CISPLATIN [Suspect]
     Indication: MALIGNANT PALATE NEOPLASM
     Route: 042
     Dates: start: 20091109
  2. FLUOROURACIL [Suspect]
     Indication: MALIGNANT PALATE NEOPLASM
     Route: 042
     Dates: start: 20091109, end: 20091112
  3. GRANISETRON HYDROCHLORIDE [Concomitant]
     Route: 042
     Dates: start: 20091109, end: 20091112
  4. DEXAMETHASONE [Concomitant]
     Route: 042
     Dates: start: 20091109, end: 20091112
  5. FAMOTIDINE [Concomitant]
     Route: 042
     Dates: start: 20091109, end: 20091109
  6. LIVALO [Concomitant]
     Route: 048
     Dates: end: 20091112
  7. VALSARTAN [Concomitant]
     Route: 048
     Dates: end: 20091112
  8. AMLODIPINE BESYLATE [Concomitant]
     Route: 048
     Dates: end: 20091112
  9. MECOBALAMIN [Concomitant]
     Route: 048
     Dates: start: 20091109, end: 20091112
  10. MECOBALAMIN [Concomitant]
     Route: 048
     Dates: end: 20091112

REACTIONS (2)
  - CARDIAC FAILURE ACUTE [None]
  - RENAL FAILURE ACUTE [None]
